FAERS Safety Report 10534485 (Version 1)
Quarter: 2014Q4

REPORT INFORMATION
  Report Type: Report from Study
  Country: US (occurrence: US)
  Receive Date: 20141022
  Receipt Date: 20141022
  Transmission Date: 20150529
  Serious: Yes (Hospitalization, Other)
  Sender: FDA-Public Use
  Company Number: US-ABBVIE-14K-163-1294469-00

PATIENT
  Age: 76 Year
  Sex: Male

DRUGS (13)
  1. HUMIRA [Suspect]
     Active Substance: ADALIMUMAB
     Route: 065
     Dates: start: 201402
  2. SLEEPING MEDICATION [Suspect]
     Active Substance: UNSPECIFIED INGREDIENT
     Indication: SLEEP DISORDER THERAPY
     Route: 065
  3. UNKNOWN MEDICATION [Suspect]
     Active Substance: UNSPECIFIED INGREDIENT
     Indication: PSORIATIC ARTHROPATHY
     Route: 065
  4. HUMIRA [Suspect]
     Active Substance: ADALIMUMAB
     Route: 065
     Dates: start: 201312, end: 201312
  5. MAGNESIUM [Concomitant]
     Active Substance: MAGNESIUM
     Indication: BLOOD MAGNESIUM DECREASED
  6. HUMIRA [Suspect]
     Active Substance: ADALIMUMAB
     Route: 065
     Dates: start: 201310, end: 201312
  7. SELARA [Suspect]
     Active Substance: EPLERENONE
     Indication: PRODUCT USED FOR UNKNOWN INDICATION
     Route: 065
     Dates: start: 2012
  8. STATIN [Suspect]
     Active Substance: UNSPECIFIED INGREDIENT
     Indication: BLOOD CHOLESTEROL INCREASED
     Route: 065
  9. HUMIRA [Suspect]
     Active Substance: ADALIMUMAB
     Indication: PSORIATIC ARTHROPATHY
     Route: 065
     Dates: start: 20141007, end: 20141007
  10. DIOVAN [Concomitant]
     Active Substance: VALSARTAN
     Indication: HYPERTENSION
  11. HUMIRA [Suspect]
     Active Substance: ADALIMUMAB
     Indication: PSORIATIC ARTHROPATHY
     Route: 065
  12. FLOMAX [Concomitant]
     Active Substance: TAMSULOSIN HYDROCHLORIDE
     Indication: PROSTATOMEGALY
  13. UNKNOWN MEDICATION [Concomitant]
     Active Substance: UNSPECIFIED INGREDIENT
     Indication: DIABETES MELLITUS

REACTIONS (18)
  - Incorrect dose administered [Unknown]
  - Blood cholesterol increased [Unknown]
  - Injection site discolouration [Recovered/Resolved]
  - Unevaluable event [Not Recovered/Not Resolved]
  - Psoriasis [Not Recovered/Not Resolved]
  - Device issue [Unknown]
  - Coagulopathy [Unknown]
  - Post procedural infection [Unknown]
  - Decreased appetite [Unknown]
  - Malaise [Recovering/Resolving]
  - Insomnia [Unknown]
  - Macular degeneration [Recovered/Resolved]
  - Psoriasis [Unknown]
  - Drug abuse [Unknown]
  - Hiccups [Unknown]
  - Heart rate decreased [Unknown]
  - Tooth fracture [Unknown]
  - Pancreatitis [Unknown]

NARRATIVE: CASE EVENT DATE: 2012
